FAERS Safety Report 10674325 (Version 1)
Quarter: 2014Q4

REPORT INFORMATION
  Report Type: Spontaneous
  Country: US (occurrence: None)
  Receive Date: 20141223
  Receipt Date: 20141223
  Transmission Date: 20150529
  Serious: No
  Sender: FDA-Public Use
  Company Number: None

PATIENT
  Age: 25 Year
  Sex: Female
  Weight: 56.7 kg

DRUGS (1)
  1. LAMICTAL [Suspect]
     Active Substance: LAMOTRIGINE
     Indication: BORDERLINE PERSONALITY DISORDER
     Dosage: LAMICTAL  ONCE DAILY TAKEN BY MOUTH
     Route: 048

REACTIONS (1)
  - Amnesia [None]

NARRATIVE: CASE EVENT DATE: 20140116
